FAERS Safety Report 18776283 (Version 1)
Quarter: 2021Q1

REPORT INFORMATION
  Report Type: Spontaneous
  Country: US (occurrence: US)
  Receive Date: 20210123
  Receipt Date: 20210123
  Transmission Date: 20210419
  Serious: No
  Sender: FDA-Public Use
  Company Number: US-CADILA HEALTHCARE LIMITED-US-ZYDUS-060082

PATIENT
  Age: 71 Year
  Sex: Female

DRUGS (1)
  1. CHOLESTYRAMINE 4 GRAM SUSPENSION [Suspect]
     Active Substance: CHOLESTYRAMINE
     Indication: IRRITABLE BOWEL SYNDROME
     Dosage: UNK, QD
     Route: 048
     Dates: start: 20201104

REACTIONS (4)
  - Product quality issue [Unknown]
  - Choking [Recovered/Resolved]
  - Foreign body in throat [Recovered/Resolved]
  - Product use in unapproved indication [Not Recovered/Not Resolved]

NARRATIVE: CASE EVENT DATE: 20201104
